FAERS Safety Report 10152197 (Version 1)
Quarter: 2014Q2

REPORT INFORMATION
  Report Type: Spontaneous
  Country: DE (occurrence: None)
  Receive Date: 20140501
  Receipt Date: 20140501
  Transmission Date: 20141212
  Serious: Yes (Other)
  Sender: FDA-Public Use
  Company Number: SYM-2014-18946

PATIENT
  Age: 28 Year
  Sex: Female

DRUGS (2)
  1. ELONTRIL (BUPROPION HYDROCHLORIDE) (PROLONGED-RELEASE TABLET) (BUPROPION HYDROCHLORIDE) [Suspect]
     Indication: DEPRESSION
     Route: 048
     Dates: start: 20140117, end: 20140310
  2. CITALOPRAM (CITALOPRAM) [Suspect]
     Indication: DEPRESSION
     Dates: start: 201312, end: 20140319

REACTIONS (2)
  - Blighted ovum [None]
  - Maternal drugs affecting foetus [None]
